FAERS Safety Report 16961352 (Version 1)
Quarter: 2019Q4

REPORT INFORMATION
  Report Type: Spontaneous
  Country: GB (occurrence: GB)
  Receive Date: 20191025
  Receipt Date: 20191025
  Transmission Date: 20200122
  Serious: Yes (Life-Threatening)
  Sender: FDA-Public Use
  Company Number: GB-PFIZER INC-2019462633

PATIENT
  Age: 57 Year
  Sex: Female
  Weight: 86.17 kg

DRUGS (2)
  1. EFEXOR XL [Suspect]
     Active Substance: VENLAFAXINE HYDROCHLORIDE
     Indication: DEPRESSION SUICIDAL
     Dosage: 75 MG, UNK
     Route: 048
     Dates: start: 20180304
  2. LORAZEPAM. [Concomitant]
     Active Substance: LORAZEPAM
     Indication: THERAPY CESSATION

REACTIONS (8)
  - Anxiety [Not Recovered/Not Resolved]
  - Suicidal ideation [Not Recovered/Not Resolved]
  - Agitation [Not Recovered/Not Resolved]
  - Crying [Not Recovered/Not Resolved]
  - Chest pain [Not Recovered/Not Resolved]
  - Depersonalisation/derealisation disorder [Not Recovered/Not Resolved]
  - Parosmia [Not Recovered/Not Resolved]
  - Hyperhidrosis [Not Recovered/Not Resolved]

NARRATIVE: CASE EVENT DATE: 20180404
